FAERS Safety Report 8515587-7 (Version None)
Quarter: 2012Q3

REPORT INFORMATION
  Report Type: 
  Country: None (occurrence: None)
  Receive Date: 20120717
  Receipt Date: 20120710
  Transmission Date: 20120928
  Serious: Yes (Hospitalization, Other)
  Sender: FDA-Public Use
  Company Number: PHHY2012FR060377

PATIENT
  Age: 32 Year
  Sex: Female

DRUGS (5)
  1. PREDNISOLONE [Interacting]
  2. MOXIFLOXACIN [Concomitant]
  3. RIFAMPICIN [Suspect]
  4. BELATACEPT [Interacting]
     Indication: IMMUNOSUPPRESSION
  5. ETHAMBUTOL HYDROCHLORIDE [Concomitant]

REACTIONS (2)
  - DRUG INTERACTION [None]
  - KIDNEY TRANSPLANT REJECTION [None]
